FAERS Safety Report 7679550-0 (Version None)
Quarter: 2011Q3

REPORT INFORMATION
  Report Type: 
  Country: None (occurrence: None)
  Receive Date: 20110812
  Receipt Date: 20110805
  Transmission Date: 20111222
  Serious: Yes (Hospitalization)
  Sender: FDA-Public Use
  Company Number: FR-BRISTOL-MYERS SQUIBB COMPANY-15918535

PATIENT
  Age: 60 Year
  Sex: Female

DRUGS (3)
  1. FLUOROURACIL [Suspect]
     Indication: OESOPHAGEAL CARCINOMA
     Dosage: MOST RECENT INFUSION ON 15OCT2010,DRUG TAKEN ON:13SEP10+15OCT10.
     Route: 042
     Dates: start: 20100913, end: 20101015
  2. CISPLATIN [Suspect]
     Indication: OESOPHAGEAL CARCINOMA
     Dosage: MOST RECENT INFUSION ON 11OCT2010,DRUG TAKEN ON:13SEP10+11OCT10
     Route: 042
     Dates: start: 20100913, end: 20101011
  3. CETUXIMAB [Suspect]
     Indication: OESOPHAGEAL CARCINOMA
     Dosage: MOST RECENT INFUSION ON 11OCT2010
     Route: 042
     Dates: start: 20100906, end: 20101011

REACTIONS (1)
  - PULMONARY EMBOLISM [None]
